FAERS Safety Report 15343676 (Version 1)
Quarter: 2018Q4

REPORT INFORMATION
  Report Type: Spontaneous
  Country: US (occurrence: US)
  Receive Date: 20180903
  Receipt Date: 20180903
  Transmission Date: 20190204
  Serious: No
  Sender: FDA-Public Use
  Company Number: US-PFIZER INC-2018354228

PATIENT
  Age: 49 Year
  Sex: Female

DRUGS (2)
  1. ACTHAR [Suspect]
     Active Substance: CORTICOTROPIN
     Dosage: UNK
  2. LYRICA [Suspect]
     Active Substance: PREGABALIN
     Dosage: UNK

REACTIONS (2)
  - Mood swings [Unknown]
  - Weight increased [Unknown]
